FAERS Safety Report 13601789 (Version 1)
Quarter: 2017Q2

REPORT INFORMATION
  Report Type: Spontaneous
  Country: US (occurrence: US)
  Receive Date: 20170601
  Receipt Date: 20170601
  Transmission Date: 20170830
  Serious: No
  Sender: FDA-Public Use
  Company Number: US-MISSION PHARMACAL COMPANY-2021446

PATIENT
  Age: 30 Year
  Sex: Male

DRUGS (1)
  1. THIOLA [Suspect]
     Active Substance: TIOPRONIN
     Indication: CYSTINURIA
     Route: 065
     Dates: start: 20160604

REACTIONS (5)
  - Abdominal pain [Recovered/Resolved]
  - Incorrect dose administered [None]
  - Pain [Recovered/Resolved]
  - Therapy change [None]
  - Drug dispensing error [None]
